FAERS Safety Report 8490154-2 (Version None)
Quarter: 2012Q3

REPORT INFORMATION
  Report Type: 
  Country: None (occurrence: None)
  Receive Date: 20120705
  Receipt Date: 20120629
  Transmission Date: 20120928
  Serious: Yes (Other)
  Sender: FDA-Public Use
  Company Number: CA-JNJFOC-20120614721

PATIENT
  Age: 60 Year
  Sex: Female
  Weight: 91.63 kg

DRUGS (7)
  1. TRAMADOL HYDROCHLORIDE/ACETAMINOPHEN [Suspect]
     Indication: ARTHRALGIA
     Dosage: 325/37.5 MG 4-6 HOUR AS NEEDED
     Dates: start: 20110224, end: 20120201
  2. DICLOFENAC SODIUM [Concomitant]
     Route: 065
  3. TRAMADOL HYDROCHLORIDE/ACETAMINOPHEN [Suspect]
     Dosage: 325/37.5 MG 4-6 HOUR AS NEEDED
     Dates: start: 20120501, end: 20120620
  4. DIOVAN [Concomitant]
     Route: 065
  5. MAXALT [Concomitant]
     Route: 065
  6. LANSOPRAZOLE [Concomitant]
     Route: 065
  7. ELAVIL [Concomitant]
     Route: 065

REACTIONS (1)
  - URGE INCONTINENCE [None]
